FAERS Safety Report 5032244-2 (Version None)
Quarter: 2006Q2

REPORT INFORMATION
  Report Type: 
  Country: None (occurrence: None)
  Receive Date: 20060619
  Receipt Date: 20060606
  Transmission Date: 20061013
  Serious: Yes (Hospitalization, Other)
  Sender: FDA-Public Use
  Company Number: HQWYE082413AUG03

PATIENT
  Age: 59 Year
  Sex: Female
  Weight: 81.72 kg

DRUGS (9)
  1. PREMPRO [Suspect]
     Indication: HORMONE REPLACEMENT THERAPY
     Dosage: 0.625MG/2.5MG DAILY, ORAL
     Route: 048
     Dates: start: 19960101, end: 20010901
  2. PREMARIN [Suspect]
     Indication: MENOPAUSE
     Dosage: 0.625MG DAILY DAYS 1-30, ORAL
     Route: 048
     Dates: start: 19910101, end: 19960101
  3. PROVERA [Suspect]
     Indication: MENOPAUSE
     Dosage: 5 MG DAILY DAYS 1-12, ORAL
     Route: 048
     Dates: start: 19910101, end: 19960101
  4. ZOLOFT [Concomitant]
  5. ASPIRIN [Concomitant]
  6. XANAX [Concomitant]
  7. PRILOSEC [Concomitant]
  8. DEMADEX [Concomitant]
  9. PROVENTIL (SALBUTAMOL SULFATE) [Concomitant]

REACTIONS (15)
  - BREAST CANCER [None]
  - BREAST CANCER IN SITU [None]
  - CARDIAC DISORDER [None]
  - CHEST DISCOMFORT [None]
  - CONDITION AGGRAVATED [None]
  - DYSPNOEA [None]
  - FATIGUE [None]
  - FIBROADENOMA OF BREAST [None]
  - LABILE HYPERTENSION [None]
  - LETHARGY [None]
  - LYMPHOHISTIOCYTOSIS [None]
  - OESTROGEN RECEPTOR ASSAY POSITIVE [None]
  - PROCEDURAL COMPLICATION [None]
  - PROGESTERONE RECEPTOR ASSAY POSITIVE [None]
  - VENTRICULAR HYPOKINESIA [None]
